FAERS Safety Report 8046495-6 (Version None)
Quarter: 2012Q1

REPORT INFORMATION
  Report Type: 
  Country: None (occurrence: None)
  Receive Date: 20120113
  Receipt Date: 20120105
  Transmission Date: 20120608
  Serious: Yes (Hospitalization, Other)
  Sender: FDA-Public Use
  Company Number: US-ASTRAZENECA-2012SE00042

PATIENT
  Sex: Female

DRUGS (4)
  1. FOSAMAX [Concomitant]
     Dosage: ONCE A WEEK
  2. ZANTAC [Concomitant]
  3. NEXIUM [Suspect]
     Indication: GASTROOESOPHAGEAL REFLUX DISEASE
     Route: 048
  4. THIRTEEN ANTIDEPRESSANTS [Concomitant]

REACTIONS (26)
  - SPINAL OSTEOARTHRITIS [None]
  - ESCHERICHIA INFECTION [None]
  - OSTEOPOROSIS [None]
  - PAIN [None]
  - LUNG NEOPLASM [None]
  - ARTHROPATHY [None]
  - WRIST FRACTURE [None]
  - BRONCHITIS [None]
  - PRODUCTIVE COUGH [None]
  - DYSSTASIA [None]
  - THYROID DISORDER [None]
  - ABDOMINAL PAIN UPPER [None]
  - LIMB INJURY [None]
  - ARTHRITIS [None]
  - BONE LOSS [None]
  - LIMB DISCOMFORT [None]
  - MENTAL IMPAIRMENT [None]
  - JOINT INJURY [None]
  - FALL [None]
  - GASTROOESOPHAGEAL REFLUX DISEASE [None]
  - FIBROMYALGIA [None]
  - CYSTITIS [None]
  - ASTHMA [None]
  - ACTIVITIES OF DAILY LIVING IMPAIRED [None]
  - THROAT IRRITATION [None]
  - ANXIETY [None]
